FAERS Safety Report 13095011 (Version 4)
Quarter: 2017Q3

REPORT INFORMATION
  Report Type: Report from Study
  Country: JP (occurrence: JP)
  Receive Date: 20170106
  Receipt Date: 20170823
  Transmission Date: 20171127
  Serious: Yes (Hospitalization, Other)
  Sender: FDA-Public Use
  Company Number: JP-AMGEN-JPNCT2016185910

PATIENT
  Age: 65 Year
  Sex: Male
  Weight: 54.8 kg

DRUGS (5)
  1. FLUOROURACIL. [Concomitant]
     Active Substance: FLUOROURACIL
     Dosage: 3750 MG, Q2WEEKS
     Route: 041
     Dates: start: 20161213, end: 20170112
  2. CALCIUM FOLINATE [Concomitant]
     Active Substance: LEUCOVORIN CALCIUM
     Indication: COLON CANCER
     Dosage: 300 MG, Q2WEEKS
     Route: 041
     Dates: start: 20161213, end: 20170112
  3. FLUOROURACIL. [Concomitant]
     Active Substance: FLUOROURACIL
     Indication: COLON CANCER
     Dosage: 600 MG, Q2WEEKS
     Route: 040
     Dates: start: 20161213, end: 20170112
  4. OXALIPLATIN. [Concomitant]
     Active Substance: OXALIPLATIN
     Indication: COLON CANCER
     Dosage: 130 MG, Q2WEEKS
     Route: 041
     Dates: start: 20161213, end: 20170112
  5. PANITUMUMAB [Suspect]
     Active Substance: PANITUMUMAB
     Indication: COLON CANCER
     Dosage: 320 MG, Q2WK
     Route: 041
     Dates: start: 20161213, end: 20170112

REACTIONS (2)
  - Cerebral haemorrhage [Not Recovered/Not Resolved]
  - Dermatitis acneiform [Unknown]

NARRATIVE: CASE EVENT DATE: 20161228
